FAERS Safety Report 13054926 (Version 1)
Quarter: 2016Q4

REPORT INFORMATION
  Report Type: Spontaneous
  Country: US (occurrence: US)
  Receive Date: 20161222
  Receipt Date: 20161222
  Transmission Date: 20170207
  Serious: No
  Sender: FDA-Public Use
  Company Number: US-PFIZER INC-2016581124

PATIENT
  Sex: Female

DRUGS (1)
  1. XELJANZ [Suspect]
     Active Substance: TOFACITINIB CITRATE
     Dosage: 5 MG, UNK

REACTIONS (13)
  - Depression [Unknown]
  - Agitation [Unknown]
  - Musculoskeletal stiffness [Unknown]
  - Pain [Unknown]
  - Night sweats [Unknown]
  - Synovitis [Unknown]
  - Gait disturbance [Unknown]
  - Diarrhoea [Unknown]
  - Activities of daily living impaired [Unknown]
  - Asthenia [Unknown]
  - Anxiety [Unknown]
  - Fatigue [Unknown]
  - Headache [Unknown]
